FAERS Safety Report 4374207-6 (Version None)
Quarter: 2004Q2

REPORT INFORMATION
  Report Type: 
  Country: None (occurrence: None)
  Receive Date: 20040608
  Receipt Date: 20040608
  Transmission Date: 20050107
  Serious: Yes (Other)
  Sender: FDA-Public Use
  Company Number: None

PATIENT
  Age: 48 Year
  Sex: Male
  Weight: 74.8435 kg

DRUGS (1)
  1. GEODON [Suspect]
     Dosage: 80 MG BID
     Dates: start: 20031001, end: 20040501

REACTIONS (1)
  - BRADYCARDIA [None]
